FAERS Safety Report 15015035 (Version 2)
Quarter: 2018Q2

REPORT INFORMATION
  Report Type: Spontaneous
  Country: CA (occurrence: CA)
  Receive Date: 20180615
  Receipt Date: 20180619
  Transmission Date: 20180711
  Serious: Yes (Other)
  Sender: FDA-Public Use
  Company Number: CA-ROCHE-2140615

PATIENT
  Age: 46 Year
  Sex: Female

DRUGS (10)
  1. TYLENOL [Concomitant]
     Active Substance: ACETAMINOPHEN
  2. ACTEMRA [Suspect]
     Active Substance: TOCILIZUMAB
     Indication: RHEUMATOID ARTHRITIS
     Route: 042
  3. TORADOL [Suspect]
     Active Substance: KETOROLAC TROMETHAMINE
     Indication: PRODUCT USED FOR UNKNOWN INDICATION
     Route: 065
  4. THIAMINE. [Concomitant]
     Active Substance: THIAMINE
     Route: 065
  5. ONDANSETRON [Concomitant]
     Active Substance: ONDANSETRON
  6. VITAMIN B12 [Concomitant]
     Active Substance: CYANOCOBALAMIN
  7. PREDNISONE. [Concomitant]
     Active Substance: PREDNISONE
  8. BIOTIN [Concomitant]
     Active Substance: BIOTIN
  9. OMEPRAZOLE. [Concomitant]
     Active Substance: OMEPRAZOLE
  10. FOLIC ACID. [Concomitant]
     Active Substance: FOLIC ACID
     Route: 065

REACTIONS (10)
  - Loss of consciousness [Unknown]
  - Dizziness [Unknown]
  - Concussion [Unknown]
  - Nausea [Unknown]
  - Hypersensitivity [Unknown]
  - Abdominal discomfort [Unknown]
  - Contusion [Unknown]
  - Diarrhoea [Unknown]
  - Fall [Unknown]
  - Pain in extremity [Unknown]
